FAERS Safety Report 13793255 (Version 1)
Quarter: 2017Q3

REPORT INFORMATION
  Report Type: Spontaneous
  Country: US (occurrence: US)
  Receive Date: 20170726
  Receipt Date: 20170726
  Transmission Date: 20171127
  Serious: No
  Sender: FDA-Public Use
  Company Number: US-BAYER-2017-140240

PATIENT
  Age: 69 Year
  Sex: Female
  Weight: 73 kg

DRUGS (3)
  1. MIRALAX [Suspect]
     Active Substance: POLYETHYLENE GLYCOL 3350
     Indication: GASTROINTESTINAL DISORDER
     Dosage: UNK
     Dates: start: 20170719, end: 20170720
  2. MIRALAX [Suspect]
     Active Substance: POLYETHYLENE GLYCOL 3350
     Indication: GASTROINTESTINAL DISORDER
     Dosage: UNK
     Route: 048
  3. MESALAMINE. [Concomitant]
     Active Substance: MESALAMINE
     Dosage: 3 DAILY

REACTIONS (5)
  - Dysgeusia [Unknown]
  - Product quality issue [None]
  - Product use issue [Unknown]
  - Underdose [Unknown]
  - Incorrect drug administration duration [None]

NARRATIVE: CASE EVENT DATE: 20170719
